FAERS Safety Report 6011735-1 (Version None)
Quarter: 2008Q4

REPORT INFORMATION
  Report Type: 
  Country: None (occurrence: None)
  Receive Date: 20081218
  Receipt Date: 20080306
  Transmission Date: 20090506
  Serious: Yes (Other)
  Sender: FDA-Public Use
  Company Number: AT-ROCHE-551519

PATIENT
  Sex: Male
  Weight: 67 kg

DRUGS (1)
  1. TAMIFLU [Suspect]
     Indication: INFLUENZA
     Dosage: OTHER INDICATION: FEVER (39.0)
     Route: 048
     Dates: start: 20080217, end: 20080217

REACTIONS (1)
  - HALLUCINATION [None]
